FAERS Safety Report 9189521 (Version 1)
Quarter: 2013Q1

REPORT INFORMATION
  Report Type: Spontaneous
  Country: US (occurrence: None)
  Receive Date: 20130322
  Receipt Date: 20130322
  Transmission Date: 20140127
  Serious: Yes (Life-Threatening, Hospitalization, Other)
  Sender: FDA-Public Use
  Company Number: 2013P1003380

PATIENT
  Age: 69 Year
  Sex: Female

DRUGS (2)
  1. AMLODIPINE [Suspect]
     Indication: SUICIDE ATTEMPT
  2. ATENOLOL [Suspect]
     Indication: SUICIDE ATTEMPT

REACTIONS (9)
  - Somnolence [None]
  - Vomiting [None]
  - Unresponsive to stimuli [None]
  - Heart rate decreased [None]
  - Blood pressure decreased [None]
  - Ventricular fibrillation [None]
  - Cardiac arrest [None]
  - Hypotension [None]
  - Chromaturia [None]
